FAERS Safety Report 8245008-3 (Version None)
Quarter: 2012Q1

REPORT INFORMATION
  Report Type: 
  Country: None (occurrence: None)
  Receive Date: 20120329
  Receipt Date: 20120326
  Transmission Date: 20120608
  Serious: Yes (Death, Other)
  Sender: FDA-Public Use
  Company Number: US-ABBOTT-12P-163-0918881-00

PATIENT
  Sex: Male
  Weight: 81.72 kg

DRUGS (6)
  1. LASIX [Concomitant]
     Indication: CARDIAC FAILURE CONGESTIVE
  2. COUMADIN [Concomitant]
     Indication: MYOCARDIAL INFARCTION
  3. CARVEDILOL [Concomitant]
     Indication: HYPERTENSION
  4. HUMIRA [Suspect]
     Indication: RHEUMATOID ARTHRITIS
     Dates: end: 20111001
  5. LIPITOR [Concomitant]
     Indication: BLOOD CHOLESTEROL INCREASED
  6. PREDNISONE TAB [Concomitant]
     Indication: OEDEMA

REACTIONS (4)
  - CARDIAC FAILURE CONGESTIVE [None]
  - SKIN CANCER [None]
  - LYMPHADENOPATHY [None]
  - OEDEMA [None]
